FAERS Safety Report 8495785-1 (Version None)
Quarter: 2012Q2

REPORT INFORMATION
  Report Type: 
  Country: None (occurrence: None)
  Receive Date: 20120405
  Receipt Date: 20091210
  Transmission Date: 20120825
  Serious: Yes (Hospitalization)
  Sender: FDA-Public Use
  Company Number: PHEH2009US17622

PATIENT
  Sex: Female

DRUGS (4)
  1. DIGOXIN [Concomitant]
  2. RECLAST [Suspect]
     Indication: BONE DENSITY DECREASED
     Dosage: ONCE/SINGLE, INFUSION;ONCE/SINGLE, INFUSION
     Dates: start: 20061101, end: 20081101
  3. RECLAST [Suspect]
     Indication: BONE DENSITY DECREASED
     Dosage: ONCE/SINGLE, INFUSION;ONCE/SINGLE, INFUSION
     Dates: start: 20091120, end: 20091120
  4. DILTIAZEM [Concomitant]

REACTIONS (1)
  - HAEMOGLOBIN DECREASED [None]
